FAERS Safety Report 11892870 (Version 1)
Quarter: 2016Q1

REPORT INFORMATION
  Report Type: Spontaneous
  Country: FR (occurrence: FR)
  Receive Date: 20160106
  Receipt Date: 20160106
  Transmission Date: 20160526
  Serious: Yes (Life-Threatening, Hospitalization)
  Sender: FDA-Public Use
  Company Number: FR-BAYER-2016-001725

PATIENT
  Age: 64 Year
  Sex: Male

DRUGS (5)
  1. POLERY ADULTE [Suspect]
     Active Substance: CODEINE\SISYMBRIUM OFFICINALE WHOLE
     Indication: BRONCHITIS
     Dosage: 200 MG, QD
     Route: 048
     Dates: start: 20151120, end: 20151123
  2. SILDENAFIL. [Suspect]
     Active Substance: SILDENAFIL
     Dosage: 1 DF, PRN
  3. ROVAMYCINE [Suspect]
     Active Substance: SPIRAMYCIN
     Indication: BRONCHITIS
     Dosage: 3 MIU, TID
     Route: 048
     Dates: start: 20151120, end: 20151123
  4. ASPIRINE PROTECT 100 MG COMPRIM? GASTRO-R?SISTANT [Suspect]
     Active Substance: ASPIRIN
     Dosage: 100 MG, QD
     Route: 048
  5. SOLUPRED [PREDNISOLONE] [Suspect]
     Active Substance: PREDNISOLONE
     Indication: BRONCHITIS
     Dosage: 60 MG, QD
     Route: 048
     Dates: start: 20151120, end: 20151123

REACTIONS (3)
  - Cardio-respiratory arrest [Recovering/Resolving]
  - Torsade de pointes [None]
  - Confusional state [None]

NARRATIVE: CASE EVENT DATE: 20151123
